FAERS Safety Report 19404868 (Version 1)
Quarter: 2021Q2

REPORT INFORMATION
  Report Type: Spontaneous
  Country: US (occurrence: US)
  Receive Date: 20210611
  Receipt Date: 20210611
  Transmission Date: 20210717
  Serious: No
  Sender: FDA-Public Use
  Company Number: US-SA-2021SA192907

PATIENT
  Sex: Female

DRUGS (4)
  1. PATADAY [Concomitant]
     Active Substance: OLOPATADINE HYDROCHLORIDE
  2. FLUTICASONE. [Concomitant]
     Active Substance: FLUTICASONE
  3. MONTELUKAST [Concomitant]
     Active Substance: MONTELUKAST SODIUM
  4. DUPIXENT [Suspect]
     Active Substance: DUPILUMAB
     Indication: DERMATITIS ATOPIC
     Dosage: 300 MG
     Route: 058

REACTIONS (1)
  - Dermatitis atopic [Unknown]
